FAERS Safety Report 24323972 (Version 2)
Quarter: 2024Q3

REPORT INFORMATION
  Report Type: Spontaneous
  Country: US (occurrence: US)
  Receive Date: 20240916
  Receipt Date: 20240928
  Transmission Date: 20241017
  Serious: No
  Sender: ROCHE
  Company Number: US-ROCHE-10000080691

PATIENT
  Sex: Male

DRUGS (2)
  1. HEMLIBRA [Suspect]
     Active Substance: EMICIZUMAB-KXWH
     Indication: Factor VIII deficiency
     Dosage: STRENGTH: 300 MG/2 ML
     Route: 058
     Dates: start: 202408
  2. JIVI [Concomitant]
     Active Substance: DAMOCTOCOG ALFA PEGOL

REACTIONS (1)
  - Myalgia [Unknown]
